FAERS Safety Report 6353424-X (Version None)
Quarter: 2009Q3

REPORT INFORMATION
  Report Type: 
  Country: None (occurrence: None)
  Receive Date: 20090912
  Receipt Date: 20090622
  Transmission Date: 20100115
  Serious: No
  Sender: FDA-Public Use
  Company Number: US-ABBOTT-08P-163-0472852-00

PATIENT
  Sex: Female
  Weight: 54.48 kg

DRUGS (3)
  1. HUMIRA [Suspect]
     Indication: ARTHRITIS
     Route: 058
     Dates: start: 20080827
  2. AZATHIOPRINE [Concomitant]
     Indication: ARTHRITIS
     Dosage: 50 MG DAILY
     Route: 048
     Dates: start: 20080818
  3. ALENDRONATE SODIUM [Concomitant]
     Indication: PROPHYLAXIS
     Dosage: 70 MG WEEKLY
     Route: 048
     Dates: start: 20070101

REACTIONS (4)
  - INCORRECT DOSE ADMINISTERED [None]
  - INJECTION SITE EXTRAVASATION [None]
  - INJECTION SITE NODULE [None]
  - WRONG TECHNIQUE IN DRUG USAGE PROCESS [None]
